FAERS Safety Report 10069654 (Version 2)
Quarter: 2014Q2

REPORT INFORMATION
  Report Type: Report from Study
  Country: US (occurrence: US)
  Receive Date: 20140410
  Receipt Date: 20140428
  Transmission Date: 20141212
  Serious: Yes (Hospitalization, Other)
  Sender: FDA-Public Use
  Company Number: US-MERCK-1404USA001186

PATIENT
  Sex: Male

DRUGS (3)
  1. REBETOL [Suspect]
     Indication: ACUTE HEPATITIS C
     Dosage: WEIGHT BASED DOSING, 1 OR 2 DAILY DOSES
     Route: 048
  2. PEGINTRON [Suspect]
     Indication: ACUTE HEPATITIS C
     Dosage: 180 MICROGRAM, QW
     Route: 058
  3. TELAPREVIR [Suspect]
     Indication: ACUTE HEPATITIS C
     Dosage: 750 MG, Q8H, WITH FOOD CONTAINING AT LEAST 20G OF FAT
     Route: 048

REACTIONS (4)
  - Abscess neck [Unknown]
  - Transfusion [Unknown]
  - Anaemia [Unknown]
  - Abscess drainage [Unknown]
